FAERS Safety Report 7819593-7 (Version None)
Quarter: 2011Q4

REPORT INFORMATION
  Report Type: 
  Country: None (occurrence: None)
  Receive Date: 20111018
  Receipt Date: 20111018
  Transmission Date: 20120403
  Serious: Yes (Hospitalization)
  Sender: FDA-Public Use
  Company Number: None

PATIENT
  Sex: Female
  Weight: 98.8 kg

DRUGS (2)
  1. ZYVOX [Suspect]
  2. ZOSYN [Concomitant]

REACTIONS (6)
  - HYPOTENSION [None]
  - HAEMOLYTIC ANAEMIA [None]
  - THROMBOCYTOPENIA [None]
  - NEUTROPENIA [None]
  - ANAEMIA [None]
  - LEUKOPENIA [None]
